FAERS Safety Report 11917305 (Version 1)
Quarter: 2016Q1

REPORT INFORMATION
  Report Type: Spontaneous
  Country: US (occurrence: US)
  Receive Date: 20160114
  Receipt Date: 20160114
  Transmission Date: 20160526
  Serious: Yes (Other)
  Sender: FDA-Public Use
  Company Number: US-ASTRAZENECA-2016SE03546

PATIENT
  Sex: Female

DRUGS (1)
  1. SYNAGIS [Suspect]
     Active Substance: PALIVIZUMAB
     Route: 030
     Dates: start: 20151124

REACTIONS (2)
  - Croup infectious [Recovering/Resolving]
  - Bronchiolitis [Recovering/Resolving]

NARRATIVE: CASE EVENT DATE: 20151225
